FAERS Safety Report 9855965 (Version 2)
Quarter: 2014Q1

REPORT INFORMATION
  Report Type: Spontaneous
  Country: GR (occurrence: GR)
  Receive Date: 20140130
  Receipt Date: 20140205
  Transmission Date: 20141002
  Serious: Yes (Death, Other)
  Sender: FDA-Public Use
  Company Number: GR-BAXTER-2014BAX003994

PATIENT
  Sex: Male

DRUGS (2)
  1. EXTRANEAL SOLUTION FOR PERITONEAL DIALYSIS 7.5% W/V (75 G/L) [Suspect]
     Indication: PERITONEAL DIALYSIS
     Dosage: 1 BAG
     Route: 033
  2. PHYSIONEAL 40 GLUCOSE 1.36% W/V / 13.6 MG/ML, SOLUTION FOR PERITONEAL [Suspect]
     Indication: PERITONEAL DIALYSIS
     Dosage: 3 BAGS
     Route: 033

REACTIONS (2)
  - Neoplasm malignant [Fatal]
  - Multimorbidity [Unknown]
